FAERS Safety Report 4693609-1 (Version None)
Quarter: 2005Q2

REPORT INFORMATION
  Report Type: 
  Country: None (occurrence: None)
  Receive Date: 20050616
  Receipt Date: 20050603
  Transmission Date: 20051028
  Serious: Yes (Life-Threatening, Hospitalization)
  Sender: FDA-Public Use
  Company Number: HQWYE800103MAR05

PATIENT
  Age: 3 Year
  Sex: Female

DRUGS (7)
  1. CHILDREN'S ADVIL [Suspect]
     Indication: PYREXIA
     Dosage: ORAL
     Route: 048
     Dates: start: 20050127, end: 20050101
  2. ACETAMINOPHEN [Suspect]
     Indication: PYREXIA
     Dates: start: 20050127, end: 20050101
  3. OROKEN (CEFIXIME) [Suspect]
     Indication: EAR INFECTION
     Dates: start: 20050202, end: 20050205
  4. OROKEN (CEFIXIME) [Suspect]
     Indication: TRACHEITIS
     Dates: start: 20050202, end: 20050205
  5. PREDNISOLONE [Suspect]
     Indication: EAR INFECTION
     Dates: start: 20050202, end: 20050201
  6. PREDNISOLONE [Suspect]
     Indication: TRACHEITIS
     Dates: start: 20050202, end: 20050201
  7. CEFPODOXIME PROXETIL [Concomitant]

REACTIONS (22)
  - ACTIVATED PARTIAL THROMBOPLASTIN TIME PROLONGED [None]
  - ATELECTASIS [None]
  - BLOOD BICARBONATE DECREASED [None]
  - BLOOD CREATININE DECREASED [None]
  - BLOOD GLUCOSE INCREASED [None]
  - BLOOD SODIUM DECREASED [None]
  - BLOOD UREA DECREASED [None]
  - CONDITION AGGRAVATED [None]
  - EAR INFECTION [None]
  - HAEMATOCRIT ABNORMAL [None]
  - HAEMATURIA [None]
  - HAEMOGLOBIN DECREASED [None]
  - HEART RATE INCREASED [None]
  - HERPES SEPSIS [None]
  - LUNG DISORDER [None]
  - PLATELET COUNT INCREASED [None]
  - PLEURAL EFFUSION [None]
  - PLEURISY [None]
  - PNEUMONIA STREPTOCOCCAL [None]
  - PROTEIN TOTAL DECREASED [None]
  - TRACHEITIS [None]
  - WEIGHT DECREASED [None]
